FAERS Safety Report 8163662-1 (Version None)
Quarter: 2012Q1

REPORT INFORMATION
  Report Type: 
  Country: None (occurrence: None)
  Receive Date: 20120221
  Receipt Date: 20120213
  Transmission Date: 20120608
  Serious: Yes (Hospitalization)
  Sender: FDA-Public Use
  Company Number: 2012SP008005

PATIENT
  Sex: Female

DRUGS (5)
  1. TRIMETHOPRIM [Concomitant]
  2. DEXAMETHASONE [Concomitant]
  3. ESOMEPRAZOLE SODIUM [Concomitant]
  4. TEMODAL [Suspect]
     Indication: GLIOBLASTOMA
     Dates: start: 20111001
  5. 5HT3 ANTAGONIST [Concomitant]

REACTIONS (3)
  - NAUSEA [None]
  - RASH GENERALISED [None]
  - HYPOTENSION [None]
